FAERS Safety Report 7278469-7 (Version None)
Quarter: 2011Q1

REPORT INFORMATION
  Report Type: 
  Country: None (occurrence: None)
  Receive Date: 20110207
  Receipt Date: 20110126
  Transmission Date: 20110831
  Serious: Yes (Other)
  Sender: FDA-Public Use
  Company Number: US-BAYER-2011-009785

PATIENT
  Sex: Male

DRUGS (4)
  1. AVELOX [Suspect]
     Indication: INFLUENZA
     Dosage: 400 MG, QD
     Dates: start: 20110125
  2. HYDROCODONE BITARTRATE/HOMATROPINE METHYBROMIDE [Concomitant]
  3. TAMIFLU [Concomitant]
  4. AVELOX [Suspect]
     Indication: UPPER RESPIRATORY TRACT INFECTION

REACTIONS (6)
  - HALLUCINATION [None]
  - HYPOAESTHESIA [None]
  - VERTIGO [None]
  - NAUSEA [None]
  - PARAESTHESIA [None]
  - MOBILITY DECREASED [None]
